FAERS Safety Report 12940822 (Version 2)
Quarter: 2016Q4

REPORT INFORMATION
  Report Type: Spontaneous
  Country: BR (occurrence: BR)
  Receive Date: 20161115
  Receipt Date: 20161122
  Transmission Date: 20170207
  Serious: Yes (Death, Hospitalization, Other)
  Sender: FDA-Public Use
  Company Number: BR-TORRENT-00003685

PATIENT
  Age: 84 Year
  Sex: Male
  Weight: 70 kg

DRUGS (2)
  1. CARVEDILOL. [Suspect]
     Active Substance: CARVEDILOL
     Indication: PRODUCT USED FOR UNKNOWN INDICATION
     Dosage: CARVEDILOL (UNKNOWN PRESENTATION) UNKNOWN DOSAGE
     Route: 048
  2. EPZ [Suspect]
     Active Substance: DONEPEZIL HYDROCHLORIDE
     Indication: DEMENTIA ALZHEIMER^S TYPE
     Dosage: EPZ 5 MG ONE OR TWO TABLETS DAILY.
     Route: 048
     Dates: start: 201610, end: 20161016

REACTIONS (3)
  - Chronic obstructive pulmonary disease [Fatal]
  - Hernia [Unknown]
  - Renal impairment [Unknown]

NARRATIVE: CASE EVENT DATE: 201610
